FAERS Safety Report 16086002 (Version 1)
Quarter: 2019Q1

REPORT INFORMATION
  Report Type: Report from Study
  Country: None (occurrence: BR)
  Receive Date: 20190318
  Receipt Date: 20190318
  Transmission Date: 20190418
  Serious: Yes (Hospitalization, Other)
  Sender: FDA-Public Use
  Company Number: BR-ABBVIE-19K-020-2704056-00

PATIENT
  Sex: Male
  Weight: 52 kg

DRUGS (4)
  1. OMEPRAZOLE. [Suspect]
     Active Substance: OMEPRAZOLE
     Indication: PRODUCT USED FOR UNKNOWN INDICATION
     Route: 058
  2. HUMIRA [Suspect]
     Active Substance: ADALIMUMAB
     Indication: CROHN^S DISEASE
     Dosage: AROUND DEC-2018
     Route: 058
     Dates: start: 20181113, end: 201812
  3. MESALAZINE [Suspect]
     Active Substance: MESALAMINE
     Indication: PRODUCT USED FOR UNKNOWN INDICATION
     Route: 058
  4. HUMIRA [Suspect]
     Active Substance: ADALIMUMAB
     Route: 058
     Dates: start: 20190223

REACTIONS (7)
  - Dyspepsia [Recovering/Resolving]
  - Hyperhidrosis [Unknown]
  - Acne [Not Recovered/Not Resolved]
  - Weight increased [Unknown]
  - Obstruction gastric [Recovering/Resolving]
  - Gastrointestinal inflammation [Unknown]
  - Procedural vomiting [Unknown]

NARRATIVE: CASE EVENT DATE: 2018
